FAERS Safety Report 5696053-3 (Version None)
Quarter: 2008Q2

REPORT INFORMATION
  Report Type: 
  Country: None (occurrence: None)
  Receive Date: 20080407
  Receipt Date: 20080401
  Transmission Date: 20081010
  Serious: Yes (Other)
  Sender: FDA-Public Use
  Company Number: B0420790A

PATIENT
  Age: 25 Year
  Sex: Male

DRUGS (4)
  1. SEROXAT [Suspect]
     Dates: start: 20001025
  2. DOTHIEPIN HYDROCHLORIDE [Suspect]
     Route: 065
  3. ZOPICLONE [Concomitant]
     Route: 065
  4. PROTHIADEN [Concomitant]
     Dates: start: 20000207

REACTIONS (14)
  - AGGRESSION [None]
  - AGITATION [None]
  - ANXIETY [None]
  - CONFUSIONAL STATE [None]
  - DISTURBANCE IN ATTENTION [None]
  - DIZZINESS [None]
  - HYPERHIDROSIS [None]
  - MALAISE [None]
  - MEMORY IMPAIRMENT [None]
  - NAUSEA [None]
  - PARAESTHESIA [None]
  - SUICIDAL IDEATION [None]
  - VOMITING [None]
  - WITHDRAWAL SYNDROME [None]
